FAERS Safety Report 21997568 (Version 4)
Quarter: 2024Q2

REPORT INFORMATION
  Report Type: Report from Study
  Country: GB (occurrence: None)
  Receive Date: 20230216
  Receipt Date: 20240513
  Transmission Date: 20240715
  Serious: Yes (Other)
  Sender: FDA-Public Use
  Company Number: GB-ROCHE-2279834

PATIENT
  Sex: Female

DRUGS (12)
  1. METHOTREXATE [Suspect]
     Active Substance: METHOTREXATE
     Indication: Rheumatoid arthritis
  2. TOCILIZUMAB [Suspect]
     Active Substance: TOCILIZUMAB
     Indication: Rheumatoid arthritis
     Dates: start: 20171125
  3. TOCILIZUMAB [Suspect]
     Active Substance: TOCILIZUMAB
     Dates: start: 20171128
  4. TOCILIZUMAB [Suspect]
     Active Substance: TOCILIZUMAB
  5. FOLIC ACID [Concomitant]
     Active Substance: FOLIC ACID
  6. METHOTREXATE [Concomitant]
     Active Substance: METHOTREXATE
  7. VITAMIN D [Concomitant]
     Active Substance: VITAMIN D NOS
  8. CALCIUM CARBONATE\CHOLECALCIFEROL [Concomitant]
     Active Substance: CALCIUM CARBONATE\CHOLECALCIFEROL
  9. IBUPROFEN [Concomitant]
     Active Substance: IBUPROFEN
  10. ACETAMINOPHEN [Concomitant]
     Active Substance: ACETAMINOPHEN
  11. VITAMIN C [Concomitant]
     Active Substance: ASCORBIC ACID
  12. ERGOCALCIFEROL [Concomitant]
     Active Substance: ERGOCALCIFEROL

REACTIONS (11)
  - Ankle fracture [Unknown]
  - Liver injury [Unknown]
  - Osteoporosis [Unknown]
  - Pain [Unknown]
  - Alopecia [Unknown]
  - Malaise [Unknown]
  - Joint effusion [Unknown]
  - Arthralgia [Unknown]
  - Inflammation [Unknown]
  - Ligament sprain [Unknown]
  - Fall [Unknown]
